FAERS Safety Report 7543836-0 (Version None)
Quarter: 2011Q2

REPORT INFORMATION
  Report Type: 
  Country: None (occurrence: None)
  Receive Date: 20110613
  Receipt Date: 20110606
  Transmission Date: 20111010
  Serious: Yes (Death, Hospitalization)
  Sender: FDA-Public Use
  Company Number: US-CELGENEUS-163-21880-11060056

PATIENT
  Age: 81 Year
  Sex: Female
  Weight: 74.4 kg

DRUGS (20)
  1. REVLIMID [Suspect]
     Dates: start: 20080801, end: 20110301
  2. OMEPRAZOLE [Concomitant]
     Dosage: 40 MILLIGRAM
     Route: 065
  3. ZOLOFT [Concomitant]
     Dosage: 50 MILLIGRAM
     Route: 048
  4. RED BLOOD CELLS [Concomitant]
     Route: 051
     Dates: start: 20050719, end: 20050719
  5. SKELAXIN [Concomitant]
     Dosage: 180
     Route: 065
  6. POTASSIUM CHLORIDE [Concomitant]
     Dosage: 20 MILLIEQUIVALENTS
     Route: 065
  7. ADVAIR DISKUS 100/50 [Concomitant]
     Route: 065
  8. ETODOLAC [Concomitant]
     Indication: ARTHRITIS
     Dosage: 50
     Route: 048
  9. ALLEGRA [Concomitant]
     Dosage: 180
     Route: 065
  10. PROPYLTHIOURACIL [Concomitant]
     Indication: HYPERTHYROIDISM
     Dosage: 50 MILLIGRAM
     Route: 048
  11. RED BLOOD CELLS [Concomitant]
     Route: 051
     Dates: start: 20080702, end: 20081101
  12. DEXAMETHASONE [Suspect]
     Dosage: 20 MILLIGRAM
     Route: 048
     Dates: start: 20050802, end: 20060207
  13. RED BLOOD CELLS [Concomitant]
     Dosage: 2 UNITS
     Route: 051
     Dates: start: 20050501, end: 20050501
  14. RED BLOOD CELLS [Concomitant]
     Route: 051
     Dates: start: 20110312, end: 20110330
  15. DEXAMETHASONE [Suspect]
     Indication: MULTIPLE MYELOMA
     Dosage: 40 MILLIGRAM
     Route: 048
     Dates: start: 20050705, end: 20050801
  16. RED BLOOD CELLS [Concomitant]
     Route: 051
     Dates: start: 20070408, end: 20070408
  17. REVLIMID [Suspect]
     Indication: MULTIPLE MYELOMA
     Dosage: 25 MILLIGRAM
     Route: 048
     Dates: start: 20050705, end: 20080813
  18. LASIX [Concomitant]
     Dosage: 40 MILLIGRAM
     Route: 065
  19. RED BLOOD CELLS [Concomitant]
     Route: 051
     Dates: start: 20090828, end: 20090828
  20. METFORMIN HCL [Concomitant]
     Route: 065

REACTIONS (1)
  - ACUTE MYELOID LEUKAEMIA [None]
